FAERS Safety Report 21410950 (Version 1)
Quarter: 2022Q4

REPORT INFORMATION
  Report Type: Spontaneous
  Country: US (occurrence: US)
  Receive Date: 20221005
  Receipt Date: 20221005
  Transmission Date: 20230113
  Serious: Yes (Other)
  Sender: FDA-Public Use
  Company Number: US-SLATE RUN PHARMACEUTICALS-22US001352

PATIENT

DRUGS (5)
  1. BIVALIRUDIN [Suspect]
     Active Substance: BIVALIRUDIN
     Indication: Heparin-induced thrombocytopenia
     Dosage: UNK
     Route: 042
  2. BIVALIRUDIN [Suspect]
     Active Substance: BIVALIRUDIN
     Dosage: UNK
     Route: 042
  3. BIVALIRUDIN [Suspect]
     Active Substance: BIVALIRUDIN
     Dosage: UNK
     Route: 042
  4. HEPARIN [Concomitant]
     Active Substance: HEPARIN SODIUM
     Indication: Deep vein thrombosis
     Dosage: UNK
     Route: 042
  5. HEPARIN [Concomitant]
     Active Substance: HEPARIN SODIUM
     Dosage: UNK
     Route: 042

REACTIONS (7)
  - Subarachnoid haemorrhage [Recovered/Resolved]
  - Skin necrosis [Unknown]
  - Pneumonia [Unknown]
  - Enterococcal bacteraemia [Unknown]
  - Osteomyelitis [Unknown]
  - Renal failure [Unknown]
  - Acute pulmonary oedema [Unknown]
